FAERS Safety Report 5518473-X (Version None)
Quarter: 2007Q4

REPORT INFORMATION
  Report Type: 
  Country: None (occurrence: None)
  Receive Date: 20071115
  Receipt Date: 20071106
  Transmission Date: 20080405
  Serious: Yes (Hospitalization, Disabling)
  Sender: FDA-Public Use
  Company Number: FR-PFIZER INC-2006105528

PATIENT
  Sex: Female

DRUGS (4)
  1. EPIRUBICIN HYDROCHLORIDE [Suspect]
     Indication: BREAST CANCER
     Dates: start: 20010703, end: 20010904
  2. LETROZOLE [Suspect]
     Indication: BREAST CANCER
     Dates: start: 20010901, end: 20060401
  3. FLUOROURACIL [Suspect]
     Indication: BREAST CANCER
     Dates: start: 20010703, end: 20010904
  4. ENDOXAN [Suspect]
     Indication: BREAST CANCER
     Dates: start: 20010703, end: 20010904

REACTIONS (2)
  - CARDIAC FAILURE [None]
  - CARDIOMYOPATHY [None]
